FAERS Safety Report 7368712-8 (Version None)
Quarter: 2011Q1

REPORT INFORMATION
  Report Type: 
  Country: None (occurrence: None)
  Receive Date: 20110323
  Receipt Date: 20091226
  Transmission Date: 20110831
  Serious: Yes (Hospitalization, Other)
  Sender: FDA-Public Use
  Company Number: US-BAYER-200943578NA

PATIENT
  Sex: Female
  Weight: 78.2 kg

DRUGS (19)
  1. NITRO-DUR [Concomitant]
     Dosage: 0.4 MG/HR, 12 HOURS DAILY
     Route: 061
  2. ANCEF [Concomitant]
     Dosage: 1G/ 2G
     Route: 042
     Dates: start: 20000327
  3. RED BLOOD CELLS [Concomitant]
     Dosage: 1 UNIT
     Dates: start: 20000331
  4. VERSED [Concomitant]
     Dosage: 2/1/1/2/4
     Route: 042
     Dates: start: 20000327
  5. MANNITOL [Concomitant]
     Dosage: 50 PUMP PRIME
     Dates: start: 20000327
  6. NITROGLYCERIN [Concomitant]
     Dosage: UNK
     Route: 042
     Dates: start: 20000327
  7. NORVASC [Concomitant]
     Dosage: 10 MG DAILY
     Route: 048
  8. HYDROCHLOROTHIAZIDE [Concomitant]
     Dosage: 25 MG DAILY
     Route: 048
  9. LABETALOL [Concomitant]
     Dosage: 25 MG
     Route: 042
     Dates: start: 20000327
  10. HEPARIN [Concomitant]
     Dosage: 1000 PUMP PRIME
     Dates: start: 20000327
  11. NEO-SYNEPHRINOL [Concomitant]
     Dosage: UNK
     Route: 042
     Dates: start: 20000327
  12. TOPROL-XL [Concomitant]
     Dosage: 100 MG DAILY
  13. TRASYLOL [Suspect]
     Indication: CARDIAC OPERATION
     Route: 042
     Dates: start: 20000328
  14. ASPIRIN [Concomitant]
     Dosage: 81 MG DAILY
     Route: 048
  15. PAPAVERINE [Concomitant]
     Dosage: 6 MG
     Route: 042
     Dates: start: 20000327
  16. DESMOPRESSIN ACETATE [Concomitant]
     Dosage: 22.4 MG
     Route: 042
     Dates: start: 20000327
  17. PROTAMINE SULFATE [Concomitant]
     Dosage: 300 MG
     Route: 042
     Dates: start: 20000327
  18. RED BLOOD CELLS [Concomitant]
     Indication: HAEMOGLOBIN DECREASED
     Dosage: 2 UNITS
     Dates: start: 20000330
  19. TRASYLOL [Suspect]
     Indication: CORONARY ARTERY BYPASS

REACTIONS (4)
  - CEREBROVASCULAR ACCIDENT [None]
  - INJURY [None]
  - PAIN [None]
  - UNEVALUABLE EVENT [None]
